FAERS Safety Report 6248225-7 (Version None)
Quarter: 2009Q2

REPORT INFORMATION
  Report Type: 
  Country: None (occurrence: None)
  Receive Date: 20090624
  Receipt Date: 20090612
  Transmission Date: 20091009
  Serious: Yes (Hospitalization, Other)
  Sender: FDA-Public Use
  Company Number: ADE# 09-247DPR

PATIENT
  Age: 75 Year
  Sex: Female

DRUGS (7)
  1. DIGOXIN [Suspect]
     Indication: CARDIAC FAILURE CONGESTIVE
     Dosage: ONE TABLET DAILY
  2. PLAVIX [Concomitant]
  3. LIPITOR [Concomitant]
  4. FAMOTIDINE [Concomitant]
  5. LISINOPRIL [Concomitant]
  6. ASPIRIN [Concomitant]
  7. METOPROLOL TARTRATE [Concomitant]

REACTIONS (2)
  - GASTRIC HAEMORRHAGE [None]
  - NAUSEA [None]
